FAERS Safety Report 12479709 (Version 1)
Quarter: 2016Q2

REPORT INFORMATION
  Report Type: Spontaneous
  Country: US (occurrence: US)
  Receive Date: 20160620
  Receipt Date: 20160620
  Transmission Date: 20160815
  Serious: No
  Sender: FDA-Public Use
  Company Number: US-TEVA-659113USA

PATIENT
  Sex: Female
  Weight: 68.1 kg

DRUGS (1)
  1. DICLOXACILLIN [Suspect]
     Active Substance: DICLOXACILLIN
     Indication: FUNGAL INFECTION
     Dates: start: 20160505

REACTIONS (4)
  - Dyspepsia [Unknown]
  - Exposure during breast feeding [Unknown]
  - Drug dispensing error [Unknown]
  - Fatigue [Unknown]
